FAERS Safety Report 21358325 (Version 1)
Quarter: 2022Q3

REPORT INFORMATION
  Report Type: Spontaneous
  Country: US (occurrence: None)
  Receive Date: 20220920
  Receipt Date: 20220920
  Transmission Date: 20221027
  Serious: Yes (Other)
  Sender: FDA-Public Use
  Company Number: None

PATIENT
  Age: 37 Year
  Sex: Female
  Weight: 81.65 kg

DRUGS (2)
  1. ELURYNG [Suspect]
     Active Substance: ETHINYL ESTRADIOL\ETONOGESTREL
     Indication: Contraception
     Dosage: OTHER FREQUENCY : Q28DAYS;?
     Route: 067
     Dates: start: 20210815, end: 20220815
  2. ETONOGESTREL/ETHINYL ESTRADIOL [Suspect]
     Active Substance: ETHINYL ESTRADIOL\ETONOGESTREL
     Indication: Contraception
     Dosage: OTHER FREQUENCY : Q 28DAYS;?
     Route: 067
     Dates: start: 20210815, end: 20220815

REACTIONS (3)
  - Abdominal pain [None]
  - Abdominal pain [None]
  - Vaginal haemorrhage [None]

NARRATIVE: CASE EVENT DATE: 20220303
